FAERS Safety Report 14894864 (Version 1)
Quarter: 2018Q2

REPORT INFORMATION
  Report Type: Other
  Country: CA (occurrence: CA)
  Receive Date: 20180515
  Receipt Date: 20180515
  Transmission Date: 20180711
  Serious: Yes (Other)
  Sender: FDA-Public Use
  Company Number: CA-APOTEX-2018AP013011

PATIENT
  Age: 6 Year
  Sex: Female
  Weight: 26 kg

DRUGS (13)
  1. CYCLOPHOSPHAMIDE. [Suspect]
     Active Substance: CYCLOPHOSPHAMIDE
     Indication: LEUKAEMIA
     Dosage: 280 MG, UNK
     Route: 042
  2. IFOSFAMIDE. [Suspect]
     Active Substance: IFOSFAMIDE
     Indication: LEUKAEMIA
     Dosage: 1.8 G, UNK
     Route: 042
  3. FLUDARABINE [Concomitant]
     Active Substance: FLUDARABINE PHOSPHATE
     Indication: PRODUCT USED FOR UNKNOWN INDICATION
     Dosage: UNK
     Route: 065
  4. METHOTREXATE. [Concomitant]
     Active Substance: METHOTREXATE
     Indication: PRODUCT USED FOR UNKNOWN INDICATION
  5. IMATINIB [Suspect]
     Active Substance: IMATINIB
     Indication: LEUKAEMIA
     Dosage: 300 MG, QD
     Route: 048
  6. L-ASPARAGINASE [Concomitant]
     Active Substance: ASPARAGINASE
     Indication: PRODUCT USED FOR UNKNOWN INDICATION
     Dosage: UNK
     Route: 065
  7. DAUNOMYCIN                         /00128201/ [Suspect]
     Active Substance: DAUNORUBICIN
     Indication: LEUKAEMIA
     Dosage: 42.8 MG, UNK
     Route: 042
  8. CYCLOPHOSPHAMIDE. [Suspect]
     Active Substance: CYCLOPHOSPHAMIDE
     Dosage: 1620 MG, UNK
     Route: 042
  9. ETOPOSIDE. [Suspect]
     Active Substance: ETOPOSIDE
     Indication: LEUKAEMIA
     Dosage: 96 MG, UNK
     Route: 042
  10. METHOTREXATE. [Suspect]
     Active Substance: METHOTREXATE
     Indication: LEUKAEMIA
     Dosage: 12 MG, UNK
     Route: 037
  11. VINCRISTINE SULFATE. [Concomitant]
     Active Substance: VINCRISTINE SULFATE
     Indication: PRODUCT USED FOR UNKNOWN INDICATION
     Dosage: UNK
     Route: 065
  12. HYDROCORTISONE. [Suspect]
     Active Substance: HYDROCORTISONE
     Indication: LEUKAEMIA
     Dosage: 12 MG, UNK
     Route: 037
  13. CYTARABINE. [Suspect]
     Active Substance: CYTARABINE
     Indication: LEUKAEMIA
     Dosage: 24 MG, UNK
     Route: 037

REACTIONS (2)
  - Cardiotoxicity [Unknown]
  - Ejection fraction decreased [Unknown]
